FAERS Safety Report 6879529-2 (Version None)
Quarter: 2010Q3

REPORT INFORMATION
  Report Type: 
  Country: None (occurrence: None)
  Receive Date: 20100728
  Receipt Date: 20100719
  Transmission Date: 20110219
  Serious: Yes (Disabling)
  Sender: FDA-Public Use
  Company Number: CA-ASTRAZENECA-2010SE34049

PATIENT
  Age: 78 Year
  Sex: Male
  Weight: 102.1 kg

DRUGS (9)
  1. NEXIUM [Suspect]
     Route: 048
  2. CRESTOR [Concomitant]
     Route: 048
  3. ADVAIR DISKUS 100/50 [Concomitant]
     Route: 055
  4. APO PREDNISONE [Concomitant]
  5. APO-AMOXI CLAV [Concomitant]
     Dosage: 875/125
  6. ATIVAN [Concomitant]
     Route: 048
  7. CELEBREX [Concomitant]
     Route: 048
  8. RATIO-EMTEC-30 [Concomitant]
     Route: 048
  9. RATIO-SALBUTAMOL HFA [Concomitant]

REACTIONS (10)
  - ACTIVITIES OF DAILY LIVING IMPAIRED [None]
  - ASTHENIA [None]
  - DYSPNOEA [None]
  - FEEDING DISORDER [None]
  - HEPATITIS [None]
  - MYALGIA [None]
  - OCULAR ICTERUS [None]
  - VISION BLURRED [None]
  - WEIGHT DECREASED [None]
  - YELLOW SKIN [None]
